FAERS Safety Report 15866604 (Version 2)
Quarter: 2019Q1

REPORT INFORMATION
  Report Type: Spontaneous
  Country: IT (occurrence: IT)
  Receive Date: 20190125
  Receipt Date: 20190215
  Transmission Date: 20190417
  Serious: Yes (Other)
  Sender: FDA-Public Use
  Company Number: IT-ASTRAZENECA-2019SE14704

PATIENT
  Age: 65 Year
  Sex: Male
  Weight: 80 kg

DRUGS (10)
  1. MIRTAZAPINE. [Suspect]
     Active Substance: MIRTAZAPINE
     Indication: INSOMNIA
     Route: 048
  2. SEROQUEL [Suspect]
     Active Substance: QUETIAPINE FUMARATE
     Route: 048
  3. RAMIPRIL. [Concomitant]
     Active Substance: RAMIPRIL
     Indication: HYPERTENSION
     Route: 048
  4. SIRIO [Suspect]
     Active Substance: CARBIDOPA\MELEVODOPA
     Indication: PARKINSONISM
     Route: 048
  5. MIRAPEXIN [Suspect]
     Active Substance: PRAMIPEXOLE
     Indication: PARKINSONISM
     Route: 048
  6. SINEMET [Suspect]
     Active Substance: CARBIDOPA\LEVODOPA
     Indication: PARKINSONISM
     Dosage: 100 MG + 25 MG (5 DOSAGE FORM, DAILY)
     Route: 048
  7. SEREUPIN [Suspect]
     Active Substance: PAROXETINE HYDROCHLORIDE
     Indication: ANXIETY DISORDER
     Route: 048
  8. DELORAZEPAM [Suspect]
     Active Substance: DELORAZEPAM
     Route: 048
  9. OMEPRAZOLE. [Suspect]
     Active Substance: OMEPRAZOLE
     Route: 048
  10. SINEMET [Suspect]
     Active Substance: CARBIDOPA\LEVODOPA
     Indication: PARKINSONISM
     Dosage: 100 MG + 25 MG (1 DOSAGE FORM, DAILY)
     Route: 048

REACTIONS (6)
  - On and off phenomenon [Recovering/Resolving]
  - Suspiciousness [Recovering/Resolving]
  - Verbal abuse [Recovering/Resolving]
  - Aggression [Recovering/Resolving]
  - Restlessness [Recovering/Resolving]
  - Jealous delusion [Recovering/Resolving]

NARRATIVE: CASE EVENT DATE: 20181210
